FAERS Safety Report 9703940 (Version 1)
Quarter: 2013Q4

REPORT INFORMATION
  Report Type: Spontaneous
  Country: US (occurrence: None)
  Receive Date: 20131121
  Receipt Date: 20131121
  Transmission Date: 20140711
  Serious: Yes (Hospitalization)
  Sender: FDA-Public Use
  Company Number: None

PATIENT
  Age: 74 Year
  Sex: Male
  Weight: 91.63 kg

DRUGS (10)
  1. TAXOTERE [Suspect]
     Indication: PROSTATE CANCER
     Dosage: 166 MG IVPB
     Dates: start: 20130911
  2. BEVACIZUMAB [Suspect]
     Indication: PROSTATE CANCER
     Dosage: 1200MG IVPB
     Dates: start: 20130911
  3. RAD001 [Suspect]
     Indication: PROSTATE CANCER
     Dosage: 2.5 MG PO
     Route: 048
     Dates: start: 20130912, end: 20131114
  4. ZOLOFT [Concomitant]
  5. TYLENOL PM [Concomitant]
  6. LUPRON [Concomitant]
  7. IBUPROFEN [Concomitant]
  8. DECADRON [Concomitant]
  9. ZOFRAN [Concomitant]
  10. COMPAZINE [Concomitant]

REACTIONS (1)
  - Portal vein thrombosis [None]
